FAERS Safety Report 8360954-8 (Version None)
Quarter: 2012Q2

REPORT INFORMATION
  Report Type: 
  Country: None (occurrence: None)
  Receive Date: 20120515
  Receipt Date: 20120503
  Transmission Date: 20120825
  Serious: Yes (Hospitalization)
  Sender: FDA-Public Use
  Company Number: US-ROCHE-1017344

PATIENT
  Sex: Female

DRUGS (4)
  1. COPEGUS [Suspect]
     Indication: HEPATITIS C
     Dosage: IN DIVIDED DOSES, ROUTE, FORM: NOT REPORTED
     Dates: start: 20111111
  2. TELAPREVIR [Suspect]
     Indication: HEPATITIS C
     Dosage: ROUTE: NOT REPORTED
     Dates: start: 20111111, end: 20120120
  3. COPEGUS [Suspect]
     Dosage: DIVIDED DOSES, LAST INJECTION ON 20/APR/2012
     Dates: end: 20120420
  4. PEGASYS [Suspect]
     Indication: HEPATITIS C
     Dosage: ROUTE: NOT REPORTED, LAST INJECTION ON 20/APR/2012
     Route: 058
     Dates: start: 20111111, end: 20120420

REACTIONS (13)
  - FATIGUE [None]
  - HYPOTENSION [None]
  - PRE-EXISTING CONDITION IMPROVED [None]
  - DEHYDRATION [None]
  - WEIGHT DECREASED [None]
  - WHITE BLOOD CELL COUNT INCREASED [None]
  - BLOOD COUNT ABNORMAL [None]
  - DIZZINESS [None]
  - EYE HAEMORRHAGE [None]
  - DYSPNOEA [None]
  - DYSGEUSIA [None]
  - GINGIVAL INFECTION [None]
  - PALPITATIONS [None]
